FAERS Safety Report 5303154-8 (Version None)
Quarter: 2007Q2

REPORT INFORMATION
  Report Type: 
  Country: None (occurrence: None)
  Receive Date: 20070420
  Receipt Date: 20070419
  Transmission Date: 20071010
  Serious: Yes (Other)
  Sender: FDA-Public Use
  Company Number: CA-GLAXOSMITHKLINE-A0642161A

PATIENT
  Age: 60 Year
  Sex: Female

DRUGS (5)
  1. SENSODYNE-F [Suspect]
     Indication: DENTAL CLEANING
     Dates: start: 20070130
  2. DIOVAN [Concomitant]
     Dates: start: 20050101
  3. INDAPAMIDE [Concomitant]
     Dates: start: 20060101
  4. NEXIUM [Concomitant]
     Dates: start: 20040101
  5. TERAZOSIN HCL [Concomitant]
     Dates: start: 20040101

REACTIONS (2)
  - DEAFNESS UNILATERAL [None]
  - EAR PAIN [None]
